FAERS Safety Report 26014128 (Version 1)
Quarter: 2025Q4

REPORT INFORMATION
  Report Type: Spontaneous
  Country: CN (occurrence: CN)
  Receive Date: 20251108
  Receipt Date: 20251108
  Transmission Date: 20260117
  Serious: Yes (Hospitalization)
  Sender: ROCHE
  Company Number: CN-ROCHE-10000430863

PATIENT
  Age: 58 Year
  Sex: Female

DRUGS (5)
  1. BEVACIZUMAB [Suspect]
     Active Substance: BEVACIZUMAB
     Indication: Endometrial cancer
     Route: 042
     Dates: start: 20251015, end: 20251015
  2. CARBOPLATIN [Suspect]
     Active Substance: CARBOPLATIN
     Indication: Endometrial cancer
     Route: 042
     Dates: start: 20251015, end: 20251015
  3. PACLITAXEL [Suspect]
     Active Substance: PACLITAXEL
     Indication: Endometrial cancer
     Route: 042
     Dates: start: 20251015, end: 20251015
  4. Recombinant Human Granulocyte Colony Stimulating Factor Injection [Concomitant]
     Route: 058
  5. ROMIPLOSTIM [Concomitant]
     Active Substance: ROMIPLOSTIM

REACTIONS (2)
  - Myelosuppression [Recovering/Resolving]
  - Pyrexia [Unknown]

NARRATIVE: CASE EVENT DATE: 20251024
